FAERS Safety Report 7381966-7 (Version None)
Quarter: 2011Q1

REPORT INFORMATION
  Report Type: 
  Country: None (occurrence: None)
  Receive Date: 20110324
  Receipt Date: 20110324
  Transmission Date: 20110831
  Serious: Yes (Life-Threatening, Hospitalization, Other)
  Sender: FDA-Public Use
  Company Number: None

PATIENT

DRUGS (1)
  1. OXYGEN [Suspect]

REACTIONS (4)
  - LUNG INFILTRATION [None]
  - DYSPNOEA [None]
  - COUGH [None]
  - PRODUCT ODOUR ABNORMAL [None]
